FAERS Safety Report 10573805 (Version 2)
Quarter: 2014Q4

REPORT INFORMATION
  Report Type: Report from Study
  Country: US (occurrence: US)
  Receive Date: 20141110
  Receipt Date: 20141110
  Transmission Date: 20150529
  Serious: Yes (Hospitalization)
  Sender: FDA-Public Use
  Company Number: US-GLAXOSMITHKLINE-A1062934A

PATIENT
  Age: 56 Year
  Sex: Female
  Weight: 68 kg

DRUGS (5)
  1. GSK2141795 CAPSULE [Suspect]
     Active Substance: UPROSERTIB
     Indication: NEOPLASM
  2. TRAMETINIB TABLET [Suspect]
     Active Substance: TRAMETINIB
     Indication: NEOPLASM
  3. TRAMETINIB TABLET [Suspect]
     Active Substance: TRAMETINIB
     Indication: MALIGNANT MELANOMA
     Dosage: 1.5 MG, QD
     Route: 048
     Dates: start: 20140212
  4. GSK2141795 CAPSULE [Suspect]
     Active Substance: UPROSERTIB
     Indication: MALIGNANT MELANOMA
     Dosage: 50 MG, QD
     Route: 048
     Dates: start: 20140212
  5. IMODIUM [Concomitant]
     Active Substance: LOPERAMIDE HYDROCHLORIDE
     Indication: DIARRHOEA
     Route: 048
     Dates: start: 20140224

REACTIONS (1)
  - Mucosal inflammation [Recovered/Resolved]

NARRATIVE: CASE EVENT DATE: 20140225
